FAERS Safety Report 8421755-5 (Version None)
Quarter: 2012Q2

REPORT INFORMATION
  Report Type: 
  Country: None (occurrence: None)
  Receive Date: 20120608
  Receipt Date: 20120528
  Transmission Date: 20120825
  Serious: Yes (Life-Threatening, Disabling)
  Sender: FDA-Public Use
  Company Number: JP-BRISTOL-MYERS SQUIBB COMPANY-16502148

PATIENT
  Age: 69 Year
  Sex: Male
  Weight: 49 kg

DRUGS (4)
  1. LEUCOVORIN CALCIUM [Suspect]
     Indication: COLON CANCER
     Route: 041
     Dates: start: 20120305, end: 20120402
  2. ERBITUX [Suspect]
     Indication: COLON CANCER
     Dosage: 12MAR-2APR12 DOSE REDUCED TO 375MG RECENT INF 2APR12
     Route: 042
     Dates: start: 20120305, end: 20120305
  3. OXALIPLATIN [Suspect]
     Indication: COLON CANCER
     Route: 041
     Dates: start: 20120305, end: 20120402
  4. FLUOROURACIL [Suspect]
     Indication: COLON CANCER
     Dosage: IV BOLUS 19MAR-2APR12-600MG 1IN2WK
     Route: 041
     Dates: start: 20120305, end: 20120402

REACTIONS (6)
  - PARONYCHIA [None]
  - DIARRHOEA [None]
  - DECREASED APPETITE [None]
  - ACNE [None]
  - STOMATITIS [None]
  - DYSGEUSIA [None]
